FAERS Safety Report 4764612-8 (Version None)
Quarter: 2005Q3

REPORT INFORMATION
  Report Type: 
  Country: None (occurrence: None)
  Receive Date: 20050907
  Receipt Date: 20050819
  Transmission Date: 20060218
  Serious: Yes (Hospitalization)
  Sender: FDA-Public Use
  Company Number: 217061

PATIENT
  Age: 71 Year
  Sex: Female
  Weight: 55.8 kg

DRUGS (1)
  1. BEVACIZUMAB (BEVACIZUMAB) PWDR + SOLVENT,INFUSION SOLN, 100MG [Suspect]
     Indication: OVARIAN CANCER
     Dosage: 840 MG, Q3W, INTRAVENOUS
     Route: 042
     Dates: start: 20050505, end: 20050707

REACTIONS (20)
  - BLOOD SODIUM DECREASED [None]
  - CULTURE POSITIVE [None]
  - DECREASED APPETITE [None]
  - DIARRHOEA [None]
  - ENTERITIS [None]
  - ENTEROCOCCAL INFECTION [None]
  - GASTRIC DILATATION [None]
  - GASTROINTESTINAL PERFORATION [None]
  - HAEMATOCRIT DECREASED [None]
  - ILEUS [None]
  - INCISION SITE COMPLICATION [None]
  - INTESTINAL OBSTRUCTION [None]
  - NAUSEA [None]
  - PLATELET COUNT DECREASED [None]
  - PLEURAL EFFUSION [None]
  - POST PROCEDURAL COMPLICATION [None]
  - PYREXIA [None]
  - VOMITING [None]
  - WHITE BLOOD CELL COUNT INCREASED [None]
  - WOUND DEHISCENCE [None]
